FAERS Safety Report 6917810-9 (Version None)
Quarter: 2010Q3

REPORT INFORMATION
  Report Type: 
  Country: None (occurrence: None)
  Receive Date: 20100806
  Receipt Date: 20100723
  Transmission Date: 20110219
  Serious: Yes (Other)
  Sender: FDA-Public Use
  Company Number: GER/GER/10/0014838

PATIENT
  Age: 38 Year
  Sex: Female

DRUGS (4)
  1. VENLAFAXINE HCL [Suspect]
     Indication: DEPRESSION
     Dosage: 375 MG, 1 IN 1 D
  2. BUPROPION HCL [Suspect]
     Indication: DEPRESSION
     Dosage: 300 MG, 1 IN 1 D
  3. LITHIUM CARBONATE [Concomitant]
  4. PREGABALIN [Concomitant]

REACTIONS (6)
  - AGITATION [None]
  - ANTIDEPRESSANT DRUG LEVEL INCREASED [None]
  - DRUG INTERACTION [None]
  - HEADACHE [None]
  - INSOMNIA [None]
  - TENSION [None]
